FAERS Safety Report 4539529-4 (Version None)
Quarter: 2004Q4

REPORT INFORMATION
  Report Type: 
  Country: None (occurrence: None)
  Receive Date: 20041222
  Receipt Date: 20041201
  Transmission Date: 20050328
  Serious: Yes (Hospitalization)
  Sender: FDA-Public Use
  Company Number: EWC041241723

PATIENT
  Age: 74 Year
  Sex: Male

DRUGS (2)
  1. OLANZAPINE [Suspect]
     Indication: MAJOR DEPRESSION
     Dosage: 5 MG
  2. NORTRIPTYLINE HCL [Suspect]
     Indication: MAJOR DEPRESSION
     Dosage: 40 MG

REACTIONS (4)
  - CARDIOVASCULAR DISORDER [None]
  - DEMENTIA [None]
  - DRUG INEFFECTIVE [None]
  - THERAPY NON-RESPONDER [None]
